FAERS Safety Report 6239022-7 (Version None)
Quarter: 2009Q2

REPORT INFORMATION
  Report Type: 
  Country: None (occurrence: None)
  Receive Date: 20090622
  Receipt Date: 20090612
  Transmission Date: 20091009
  Serious: Yes (Hospitalization)
  Sender: FDA-Public Use
  Company Number: B0579818A

PATIENT
  Age: 13 Year
  Sex: Male
  Weight: 90 kg

DRUGS (3)
  1. ALBUTEROL [Suspect]
     Indication: ASTHMA
     Dosage: 15MG PER DAY
     Route: 045
  2. IPRATROPIUM BROMIDE [Concomitant]
  3. PREDNISOLONE [Concomitant]
     Route: 042

REACTIONS (2)
  - LACTIC ACIDOSIS [None]
  - TACHYCARDIA [None]
